FAERS Safety Report 4626202-7 (Version None)
Quarter: 2005Q2

REPORT INFORMATION
  Report Type: 
  Country: None (occurrence: None)
  Receive Date: 20050404
  Receipt Date: 20050330
  Transmission Date: 20051028
  Serious: Yes (Life-Threatening, Hospitalization)
  Sender: FDA-Public Use
  Company Number: PHRM2005FR01177

PATIENT
  Age: 69 Year
  Sex: Female

DRUGS (9)
  1. ACTISKENAN [Concomitant]
     Indication: VENOUS ULCER PAIN
     Dosage: 10 MG/DAY
     Route: 048
     Dates: start: 20040101
  2. LOVENOX [Concomitant]
     Indication: THROMBOSIS PROPHYLAXIS
     Dosage: 40 MG/24 HOURS
     Route: 051
  3. NISISCO [Suspect]
     Indication: HYPERTENSION
     Dosage: 1 DF, QD
     Route: 048
     Dates: start: 20041101, end: 20050303
  4. NEURONTIN [Concomitant]
     Indication: VENOUS ULCER PAIN
     Dosage: 800 MG, BID
     Route: 048
  5. DEROXAT [Concomitant]
     Dosage: 20 MG, BID
     Route: 048
  6. RIVOTRIL [Concomitant]
     Dosage: 8 DRP, QD
     Route: 048
  7. ZOLPIDEM TARTRATE [Concomitant]
     Indication: INSOMNIA
     Route: 048
  8. JAMYLENE [Concomitant]
     Indication: CONSTIPATION
     Dosage: 50 MG, TID2SDO
     Route: 048
  9. SKENAN [Concomitant]
     Indication: VENOUS ULCER PAIN
     Dosage: 20 MG, BID
     Route: 048
     Dates: start: 20040101

REACTIONS (8)
  - ANURIA [None]
  - BLOOD CREATININE INCREASED [None]
  - COMA [None]
  - DEPRESSED LEVEL OF CONSCIOUSNESS [None]
  - INTUBATION [None]
  - MYOCLONUS [None]
  - NERVOUS SYSTEM DISORDER [None]
  - RENAL FAILURE ACUTE [None]
